FAERS Safety Report 8326279-1 (Version None)
Quarter: 2012Q2

REPORT INFORMATION
  Report Type: 
  Country: None (occurrence: None)
  Receive Date: 20120501
  Receipt Date: 20120419
  Transmission Date: 20120825
  Serious: Yes (Hospitalization, Other)
  Sender: FDA-Public Use
  Company Number: KR-ELI_LILLY_AND_COMPANY-KR201202005861

PATIENT
  Sex: Male
  Weight: 65 kg

DRUGS (3)
  1. UCERAX [Concomitant]
  2. GEMCITABINE HYDROCHLORIDE [Suspect]
     Indication: NON-SMALL CELL LUNG CANCER
     Dosage: 2188 MG, EVERY 21 DAYS
     Dates: start: 20120207, end: 20120213
  3. CISPLATIN [Suspect]
     Indication: NON-SMALL CELL LUNG CANCER
     Dosage: 131 MG, EVERY 21 DAYS
     Dates: start: 20120207, end: 20120207

REACTIONS (3)
  - PNEUMONIA [None]
  - THROMBOCYTOPENIA [None]
  - NEUTROPENIA [None]
